FAERS Safety Report 18053891 (Version 1)
Quarter: 2020Q3

REPORT INFORMATION
  Report Type: Other
  Country: US (occurrence: US)
  Receive Date: 20200722
  Receipt Date: 20200722
  Transmission Date: 20201103
  Serious: Yes (Other)
  Sender: FDA-Public Use
  Company Number: US-ACORDA-ACO_165525_2020

PATIENT
  Sex: Female

DRUGS (1)
  1. AMPYRA [Suspect]
     Active Substance: DALFAMPRIDINE
     Indication: MULTIPLE SCLEROSIS
     Dosage: 10 MILLIGRAM, BID
     Route: 048
     Dates: start: 20200206

REACTIONS (6)
  - Dizziness [Unknown]
  - Aphasia [Unknown]
  - Dehydration [Unknown]
  - Seizure [Unknown]
  - Temperature intolerance [Unknown]
  - Contraindicated product prescribed [Unknown]
